FAERS Safety Report 10732284 (Version 6)
Quarter: 2015Q2

REPORT INFORMATION
  Report Type: Spontaneous
  Country: US (occurrence: US)
  Receive Date: 20150123
  Receipt Date: 20150615
  Transmission Date: 20150821
  Serious: Yes (Hospitalization, Disabling, Other)
  Sender: FDA-Public Use
  Company Number: US-009507513-1104USA02653

PATIENT
  Sex: Female
  Weight: 50.34 kg

DRUGS (3)
  1. ALENDRONATE SODIUM. [Suspect]
     Active Substance: ALENDRONATE SODIUM
     Indication: BONE DENSITY DECREASED
     Dosage: 70 MG, UNK
     Route: 048
     Dates: start: 20080211, end: 20120801
  2. FOSAMAX [Suspect]
     Active Substance: ALENDRONATE SODIUM
     Indication: BONE DENSITY DECREASED
     Dosage: 70 MG, QW
     Route: 048
     Dates: start: 2003, end: 20080114
  3. FOSAMAX [Suspect]
     Active Substance: ALENDRONATE SODIUM
     Route: 048
     Dates: start: 2005, end: 200910

REACTIONS (14)
  - Anaemia [Unknown]
  - Ankle fracture [Unknown]
  - Hypertension [Unknown]
  - Haematuria [Unknown]
  - Femur fracture [Unknown]
  - Chest pain [Unknown]
  - Fall [Unknown]
  - Type 2 diabetes mellitus [Unknown]
  - Haematuria [Recovered/Resolved]
  - Osteopenia [Unknown]
  - Open reduction of fracture [Unknown]
  - Intramedullary rod insertion [Unknown]
  - Coronary artery disease [Unknown]
  - Bacterial vaginosis [Unknown]

NARRATIVE: CASE EVENT DATE: 2003
